FAERS Safety Report 9030958 (Version 1)
Quarter: 2013Q1

REPORT INFORMATION
  Report Type: Report from Study
  Country: DK (occurrence: DK)
  Receive Date: 20130123
  Receipt Date: 20130123
  Transmission Date: 20140127
  Serious: Yes (Other)
  Sender: FDA-Public Use
  Company Number: DK-BAXTER-2013BAX002961

PATIENT
  Age: 59 Year
  Sex: Female

DRUGS (3)
  1. SENDOXAN [Suspect]
     Indication: BREAST CANCER
  2. EPIRUBICIN [Suspect]
     Indication: BREAST CANCER
  3. 5-FLUOROURACIL [Suspect]
     Indication: BREAST CANCER

REACTIONS (1)
  - Myocardial ischaemia [Unknown]
